FAERS Safety Report 22318175 (Version 2)
Quarter: 2023Q2

REPORT INFORMATION
  Report Type: Spontaneous
  Country: US (occurrence: US)
  Receive Date: 20230515
  Receipt Date: 20230523
  Transmission Date: 20230722
  Serious: No
  Sender: FDA-Public Use
  Company Number: US-SANOFI-01609223

PATIENT
  Sex: Male

DRUGS (1)
  1. DUPIXENT [Suspect]
     Active Substance: DUPILUMAB
     Indication: Nasal polyps
     Dosage: 300 MG, QOW
     Route: 065

REACTIONS (6)
  - Injection site pain [Unknown]
  - Product preparation error [Unknown]
  - Nasal polyps [Unknown]
  - Condition aggravated [Unknown]
  - Injection site swelling [Unknown]
  - Accidental exposure to product [Unknown]
